FAERS Safety Report 5384047-7 (Version None)
Quarter: 2007Q3

REPORT INFORMATION
  Report Type: 
  Country: None (occurrence: None)
  Receive Date: 20070711
  Receipt Date: 20070629
  Transmission Date: 20080115
  Serious: Yes (Hospitalization)
  Sender: FDA-Public Use
  Company Number: FI-AMGEN-US232966

PATIENT
  Sex: Female

DRUGS (10)
  1. ENBREL [Suspect]
     Indication: RHEUMATOID ARTHRITIS
     Route: 058
     Dates: start: 20050101, end: 20070108
  2. KALCIPOS-D [Concomitant]
     Indication: OSTEOPOROSIS
     Dosage: 500 MG
  3. OMEPRAZOLE [Concomitant]
     Dosage: 20 MG PER DAY
  4. SPESICOR DOS [Concomitant]
     Dosage: 47,5 MG PER DAY
  5. OPTINATE [Concomitant]
     Indication: OSTEOPOROSIS
     Dosage: 35 MG PER WEEK
  6. PARATABS [Concomitant]
     Dosage: 1,5+1,5+1
  7. LEVOLAC [Concomitant]
     Dosage: 20 ML TWICE PER DAY
  8. IDEOS [Concomitant]
     Dosage: 2 TABLETS PER DAY
  9. PREDNISOLONE [Concomitant]
     Indication: RHEUMATOID ARTHRITIS
     Dosage: 5 MG PER DAY
  10. DUREKAL [Concomitant]

REACTIONS (1)
  - PERITONEAL TUBERCULOSIS [None]
